FAERS Safety Report 19666390 (Version 1)
Quarter: 2021Q3

REPORT INFORMATION
  Report Type: Other
  Country: US (occurrence: US)
  Receive Date: 20210806
  Receipt Date: 20210806
  Transmission Date: 20211014
  Serious: Yes (Other)
  Sender: FDA-Public Use
  Company Number: US-UMEDICA-000122

PATIENT
  Age: 42 Year
  Sex: Male

DRUGS (1)
  1. SILDENAFIL. [Suspect]
     Active Substance: SILDENAFIL
     Indication: CHORIORETINOPATHY

REACTIONS (3)
  - Therapy non-responder [Unknown]
  - Detachment of retinal pigment epithelium [Unknown]
  - Subretinal fluid [Unknown]
